FAERS Safety Report 9536653 (Version 1)
Quarter: 2013Q2

REPORT INFORMATION
  Report Type: Spontaneous
  Country: US (occurrence: None)
  Receive Date: 20130517
  Receipt Date: 20130517
  Transmission Date: 20140414
  Serious: No
  Sender: FDA-Public Use
  Company Number: 1000043002

PATIENT
  Age: 47 Year
  Sex: Female

DRUGS (1)
  1. VIIBRYD [Suspect]
     Indication: DEPRESSION
     Dosage: 10 MG (10 MG, 1 IN 1 D), ORAL
     Route: 048
     Dates: start: 20130212, end: 20130218

REACTIONS (5)
  - Vision blurred [None]
  - Abdominal pain upper [None]
  - Nausea [None]
  - Diarrhoea [None]
  - Headache [None]
